FAERS Safety Report 18612263 (Version 1)
Quarter: 2020Q4

REPORT INFORMATION
  Report Type: Spontaneous
  Country: US (occurrence: US)
  Receive Date: 20201214
  Receipt Date: 20201214
  Transmission Date: 20210114
  Serious: Yes (Other)
  Sender: FDA-Public Use
  Company Number: US-PURACAP PHARMACEUTICAL LLC-2020EPC00373

PATIENT
  Age: 17 Year
  Sex: Female

DRUGS (2)
  1. IBUPROFEN. [Suspect]
     Active Substance: IBUPROFEN
     Dosage: UNK
     Route: 065
  2. IBUPROFEN. [Suspect]
     Active Substance: IBUPROFEN
     Dosage: 2000 MG/KG
     Route: 065

REACTIONS (6)
  - Metabolic acidosis [Recovered/Resolved]
  - Compartment syndrome [Recovered/Resolved]
  - Intentional overdose [Recovered/Resolved]
  - Cardiopulmonary failure [Recovered/Resolved]
  - Arrhythmia [Recovered/Resolved]
  - Acute kidney injury [Recovered/Resolved]
